FAERS Safety Report 17812905 (Version 1)
Quarter: 2020Q2

REPORT INFORMATION
  Report Type: Spontaneous
  Country: US (occurrence: US)
  Receive Date: 20200521
  Receipt Date: 20200521
  Transmission Date: 20200714
  Serious: No
  Sender: FDA-Public Use
  Company Number: US-TAKEDA-2020TUS022878

PATIENT
  Sex: Female

DRUGS (1)
  1. ENTYVIO [Suspect]
     Active Substance: VEDOLIZUMAB
     Indication: PRODUCT USED FOR UNKNOWN INDICATION
     Dosage: UNK
     Route: 065

REACTIONS (13)
  - Dry skin [Unknown]
  - Feeling abnormal [Unknown]
  - Anxiety [Unknown]
  - Pyrexia [Unknown]
  - Insomnia [Unknown]
  - Acne cystic [Unknown]
  - Joint swelling [Unknown]
  - Urticaria [Unknown]
  - Migraine [Unknown]
  - Oral pain [Unknown]
  - Depression [Unknown]
  - Arthralgia [Unknown]
  - Skin ulcer [Unknown]
